FAERS Safety Report 4337640-4 (Version None)
Quarter: 2004Q2

REPORT INFORMATION
  Report Type: 
  Country: None (occurrence: None)
  Receive Date: 20040407
  Receipt Date: 20040324
  Transmission Date: 20050107
  Serious: Yes (Hospitalization)
  Sender: FDA-Public Use
  Company Number: JP-JNJFOC-20040305348

PATIENT
  Age: 5 Year
  Sex: Female
  Weight: 12.7 kg

DRUGS (22)
  1. REMICADE [Suspect]
     Indication: CROHN'S DISEASE
     Dosage: 5 MG/KG, INTRAVENOUS; 5 MG/KG, INTRAVENOUS
     Route: 042
     Dates: start: 20030626, end: 20030626
  2. REMICADE [Suspect]
     Indication: CROHN'S DISEASE
     Dosage: 5 MG/KG, INTRAVENOUS; 5 MG/KG, INTRAVENOUS
     Route: 042
     Dates: start: 20030814, end: 20030814
  3. BIOFERMIN (BIOFERMIN) [Concomitant]
  4. PREDNISOLONE [Concomitant]
  5. WATER-SOLUBLE HYDROCORTISONE (HYDROCORTISONE) [Concomitant]
  6. IMURAN [Concomitant]
  7. SULFASALAZINE [Concomitant]
  8. FLAGYL [Concomitant]
  9. DEPAKENE [Concomitant]
  10. FAMOTIDINE [Concomitant]
  11. URALYT-U (URALYT-U) [Concomitant]
  12. ATARAX [Concomitant]
  13. ADSORBIN (ALUMINIUM SILICATE) [Concomitant]
  14. PENTAZOCINE LACTATE [Concomitant]
  15. CEFPIRAMIDE SODIUM [Concomitant]
  16. HYOSCINE HBR HYT [Concomitant]
  17. VOLTAREN [Concomitant]
  18. DIAZEPAM [Concomitant]
  19. TOTAL PARENTAL NUTRITION (POLYVINYL ALCOHOL) [Concomitant]
  20. ENTERAL NUTRITION (SOLUTIONS FOR PARENTERAL NUTRITION) [Concomitant]
  21. RHEUMATREX [Concomitant]
  22. PERDIPIN (NICARDIPINE HYDROCHLORIDE) [Concomitant]

REACTIONS (2)
  - HEPATIC FUNCTION ABNORMAL [None]
  - PYREXIA [None]
